FAERS Safety Report 6170977-5 (Version None)
Quarter: 2009Q2

REPORT INFORMATION
  Report Type: 
  Country: None (occurrence: None)
  Receive Date: 20090429
  Receipt Date: 20090423
  Transmission Date: 20091009
  Serious: Yes (Other)
  Sender: FDA-Public Use
  Company Number: GB-TEVA-192759ISR

PATIENT
  Age: 32 Year
  Sex: Female

DRUGS (1)
  1. ERYTHROMYCIN [Suspect]
     Indication: PREMATURE RUPTURE OF MEMBRANES
     Route: 048
     Dates: start: 20090315, end: 20090403

REACTIONS (5)
  - AGITATION [None]
  - DELUSION [None]
  - HALLUCINATION, AUDITORY [None]
  - HALLUCINATION, VISUAL [None]
  - PREGNANCY [None]
